FAERS Safety Report 8021405-6 (Version None)
Quarter: 2012Q1

REPORT INFORMATION
  Report Type: 
  Country: None (occurrence: None)
  Receive Date: 20120104
  Receipt Date: 20111228
  Transmission Date: 20120608
  Serious: Yes (Other)
  Sender: FDA-Public Use
  Company Number: JP-PFIZER INC-2011316149

PATIENT
  Sex: Female

DRUGS (4)
  1. METFORMIN HCL [Suspect]
     Indication: DIABETES MELLITUS
     Dosage: 750 MG, DAILY DOSE
     Route: 048
     Dates: start: 20101202, end: 20110805
  2. MIGLITOL [Suspect]
     Indication: DIABETES MELLITUS
     Dosage: 150 MG, DAILY DOSE
     Route: 048
     Dates: start: 20101202, end: 20110804
  3. LOCHOLEST [Suspect]
     Dosage: UNK
     Route: 048
     Dates: start: 20101202, end: 20110806
  4. MICARDIS [Suspect]
     Indication: HYPERTENSION
     Dosage: 20 MG, DAILY
     Route: 048
     Dates: start: 20101202, end: 20110807

REACTIONS (4)
  - ASPARTATE AMINOTRANSFERASE INCREASED [None]
  - LIVER DISORDER [None]
  - BLOOD ALKALINE PHOSPHATASE INCREASED [None]
  - ALANINE AMINOTRANSFERASE INCREASED [None]
